FAERS Safety Report 15478529 (Version 1)
Quarter: 2018Q4

REPORT INFORMATION
  Report Type: Spontaneous
  Country: US (occurrence: US)
  Receive Date: 20181009
  Receipt Date: 20181009
  Transmission Date: 20190205
  Serious: Yes (Death, Hospitalization)
  Sender: FDA-Public Use
  Company Number: US-ACELLA PHARMACEUTICALS, LLC-2055838

PATIENT
  Age: 30 Year
  Sex: Male

DRUGS (5)
  1. COCAINE HYDROCHLORIDE. [Concomitant]
     Active Substance: COCAINE HYDROCHLORIDE
  2. DIPHENHYDRAMINE. [Concomitant]
     Active Substance: DIPHENHYDRAMINE
  3. CITALOPRAM [Concomitant]
     Active Substance: CITALOPRAM HYDROBROMIDE
  4. HEROIN [Concomitant]
     Active Substance: DIAMORPHINE
  5. BROMPHENIRAMINE MAL, PSEUDOEPHEDRINE HCL, AND DEXTROMETHORPHAN HBR (AN [Suspect]
     Active Substance: DEXBROMPHENIRAMINE MALEATE\DEXTROMETHORPHAN HYDROBROMIDE\PSEUDOEPHEDRINE HYDROCHLORIDE

REACTIONS (11)
  - Pneumonia aspiration [Fatal]
  - Blister [Unknown]
  - Metabolic acidosis [Fatal]
  - Hepatotoxicity [Fatal]
  - Depressed level of consciousness [Fatal]
  - Tachycardia [Fatal]
  - Tremor [Unknown]
  - Coagulopathy [Unknown]
  - Leukocytosis [Unknown]
  - Acute kidney injury [Unknown]
  - Rhabdomyolysis [Unknown]
